FAERS Safety Report 5963925-1 (Version None)
Quarter: 2008Q4

REPORT INFORMATION
  Report Type: 
  Country: None (occurrence: None)
  Receive Date: 20081124
  Receipt Date: 20081119
  Transmission Date: 20090506
  Serious: Yes (Other)
  Sender: FDA-Public Use
  Company Number: US-ASTRAZENECA-2008UW25938

PATIENT
  Age: 10 Year
  Sex: Female
  Weight: 31.3 kg

DRUGS (4)
  1. ENTOCORT EC [Suspect]
     Dosage: EITHER 6 MG OR 9 MG DAILY
     Route: 048
     Dates: start: 20070501, end: 20080601
  2. MERCAPTOPURINE [Concomitant]
  3. PENTASA [Concomitant]
  4. CLONIDINE [Concomitant]

REACTIONS (4)
  - BLOOD IMMUNOGLOBULIN A DECREASED [None]
  - BLOOD IMMUNOGLOBULIN G DECREASED [None]
  - LYMPHOCYTE COUNT DECREASED [None]
  - WHITE BLOOD CELL COUNT DECREASED [None]
